FAERS Safety Report 10538747 (Version 4)
Quarter: 2015Q1

REPORT INFORMATION
  Report Type: Spontaneous
  Country: JP (occurrence: JP)
  Receive Date: 20141023
  Receipt Date: 20150305
  Transmission Date: 20150720
  Serious: Yes (Other)
  Sender: FDA-Public Use
  Company Number: JP-TAKEDA-2014JNJ005909

PATIENT

DRUGS (3)
  1. LENALIDOMIDE [Concomitant]
     Active Substance: LENALIDOMIDE
     Indication: PLASMA CELL MYELOMA
     Dosage: 10 MG,
     Route: 048
  2. VELCADE [Suspect]
     Active Substance: BORTEZOMIB
     Indication: PLASMA CELL MYELOMA
     Dosage: 1.3 MG/M2, UNK
     Route: 058
  3. DEXAMETHASONE. [Concomitant]
     Active Substance: DEXAMETHASONE
     Indication: PLASMA CELL MYELOMA
     Dosage: 40 MG,
     Route: 048

REACTIONS (9)
  - Thrombocytopenia [Unknown]
  - Acute lymphocytic leukaemia [Unknown]
  - Hypertension [Unknown]
  - Neuropathy peripheral [Unknown]
  - Pneumonia [Unknown]
  - Constipation [Unknown]
  - Neutrophil count decreased [Unknown]
  - Anaemia [Unknown]
  - Pancreatic carcinoma [Unknown]
